FAERS Safety Report 7465713-6 (Version None)
Quarter: 2011Q2

REPORT INFORMATION
  Report Type: 
  Country: None (occurrence: None)
  Receive Date: 20110509
  Receipt Date: 20110428
  Transmission Date: 20111010
  Serious: Yes (Congenital Anomaly)
  Sender: FDA-Public Use
  Company Number: B0716824A

PATIENT

DRUGS (1)
  1. LAMICTAL [Suspect]
     Route: 064

REACTIONS (1)
  - HYPOGLYCAEMIA [None]
